FAERS Safety Report 13947441 (Version 1)
Quarter: 2017Q3

REPORT INFORMATION
  Report Type: Spontaneous
  Country: IT (occurrence: IT)
  Receive Date: 20170908
  Receipt Date: 20170908
  Transmission Date: 20171128
  Serious: Yes (Hospitalization)
  Sender: FDA-Public Use
  Company Number: IT-AUROBINDO-AUR-APL-2017-39687

PATIENT
  Age: 88 Year
  Sex: Female

DRUGS (2)
  1. RAMIPRIL 5 MG TABLET [Suspect]
     Active Substance: RAMIPRIL
     Indication: HYPERTENSION
     Dosage: 5 MG, DAILY
     Route: 048
     Dates: end: 20170812
  2. LUVION                             /00252501/ [Suspect]
     Active Substance: CANRENOIC ACID
     Indication: CARDIAC FAILURE
     Dosage: 50 MG, DAILY
     Route: 065
     Dates: end: 20170812

REACTIONS (3)
  - Syncope [Recovered/Resolved]
  - Nodal arrhythmia [Recovered/Resolved]
  - Blood potassium increased [Recovered/Resolved]

NARRATIVE: CASE EVENT DATE: 20170812
